FAERS Safety Report 14925027 (Version 1)
Quarter: 2018Q2

REPORT INFORMATION
  Report Type: Spontaneous
  Country: US (occurrence: US)
  Receive Date: 20180522
  Receipt Date: 20180522
  Transmission Date: 20180711
  Serious: No
  Sender: FDA-Public Use
  Company Number: US-TARO-2017TAR00791

PATIENT
  Sex: Male

DRUGS (2)
  1. CICLOPIROX OLAMINE CREAM USP 0.77% [Suspect]
     Active Substance: CICLOPIROX OLAMINE
     Dosage: 5 MG, 1X/DAY
     Route: 061
     Dates: start: 20170811, end: 2017
  2. CICLOPIROX OLAMINE CREAM USP 0.77% [Suspect]
     Active Substance: CICLOPIROX OLAMINE
     Dosage: 5 MG, 1X/DAY
     Route: 061
     Dates: start: 2017

REACTIONS (2)
  - Skin irritation [Recovered/Resolved]
  - Product quality issue [Recovered/Resolved]

NARRATIVE: CASE EVENT DATE: 2017
